FAERS Safety Report 6872152-5 (Version None)
Quarter: 2010Q3

REPORT INFORMATION
  Report Type: 
  Country: None (occurrence: None)
  Receive Date: 20100723
  Receipt Date: 20100630
  Transmission Date: 20110219
  Serious: Yes (Hospitalization, Other)
  Sender: FDA-Public Use
  Company Number: US-PFIZER INC-2010082433

PATIENT
  Sex: Male

DRUGS (12)
  1. DILANTIN [Suspect]
     Indication: CONVULSION
     Dosage: 50 MG, 1 TABLET IN THE MORNING AND 2 TABLETS AT NIGHT
     Route: 048
     Dates: start: 20051215
  2. DILANTIN [Suspect]
     Dosage: 150 MG, 2X/DAY
     Route: 048
     Dates: start: 20060104
  3. DILANTIN [Suspect]
     Dosage: 75 MG, UNK
     Dates: start: 20060210, end: 20060211
  4. DILANTIN [Suspect]
     Dosage: 37.5 MG, UNK
     Dates: start: 20060211, end: 20060213
  5. DILANTIN [Suspect]
     Dosage: 50 MG, ONE TABLET IN THE MORNING AND TWO TABLETS AT NIGHT
     Dates: start: 20060105
  6. DILANTIN-125 [Suspect]
     Indication: CONVULSION
     Dosage: 75 MG, UNK
     Dates: start: 20060210, end: 20060210
  7. DILANTIN-125 [Suspect]
     Dosage: 37 MG, UNK
     Dates: start: 20060211, end: 20060211
  8. KEPPRA [Concomitant]
  9. BENADRYL [Concomitant]
  10. GUAIFENESIN [Concomitant]
  11. ADVIL LIQUI-GELS [Concomitant]
  12. TOPAMAX [Concomitant]

REACTIONS (15)
  - CONSTIPATION [None]
  - CONVULSION [None]
  - DIZZINESS [None]
  - DRUG ERUPTION [None]
  - DYSPHAGIA [None]
  - GIANOTTI-CROSTI SYNDROME [None]
  - HEPATIC ENZYME INCREASED [None]
  - HEPATITIS [None]
  - HEPATOMEGALY [None]
  - INFECTION [None]
  - KAWASAKI'S DISEASE [None]
  - OROPHARYNGEAL PAIN [None]
  - PENILE SWELLING [None]
  - SCARLET FEVER [None]
  - VIRAL RASH [None]
